FAERS Safety Report 9010080 (Version 2)
Quarter: 2013Q2

REPORT INFORMATION
  Report Type: Spontaneous
  Country: US (occurrence: US)
  Receive Date: 20130110
  Receipt Date: 20130422
  Transmission Date: 20140414
  Serious: No
  Sender: FDA-Public Use
  Company Number: US-VERTEX PHARMACEUTICALS INC.-2013-000347

PATIENT
  Sex: Male
  Weight: 22 kg

DRUGS (8)
  1. KALYDECO [Suspect]
     Indication: CYSTIC FIBROSIS
     Dosage: 150 MG, BID
     Route: 048
  2. CREON [Concomitant]
     Dosage: 24000 IU, UNK
     Route: 048
  3. TOBI [Concomitant]
  4. ALBUTEROL [Concomitant]
     Dosage: 90 ?G, UNK
  5. PREVACID [Concomitant]
     Dosage: 15 MG, UNK
  6. VITAMAX [Concomitant]
  7. PULMOZYME [Concomitant]
     Dosage: UNK
  8. SALINE [Concomitant]

REACTIONS (2)
  - Cough [Unknown]
  - Nasopharyngitis [Unknown]
